FAERS Safety Report 6870778-6 (Version None)
Quarter: 2010Q3

REPORT INFORMATION
  Report Type: 
  Country: None (occurrence: None)
  Receive Date: 20100723
  Receipt Date: 20100701
  Transmission Date: 20110219
  Serious: Yes (Other)
  Sender: FDA-Public Use
  Company Number: FR-B.I. PHARMACEUTICALS,INC./RIDGEFIELD-2010-FF-00556FF

PATIENT
  Sex: Female
  Weight: 72 kg

DRUGS (7)
  1. SIFROL [Suspect]
     Indication: RESTLESS LEGS SYNDROME
     Dosage: HALF DAILY FOR ONE WEEK THEN ONCE DAILY
     Route: 048
     Dates: start: 20100526, end: 20100628
  2. SIFROL [Suspect]
     Indication: POOR QUALITY SLEEP
  3. ANAFRANIL [Concomitant]
     Dosage: 10 MG
     Route: 048
  4. SPIRONOLACTONE [Concomitant]
     Route: 048
     Dates: start: 20080101
  5. METFORMIN HCL [Concomitant]
     Route: 048
     Dates: start: 20080101
  6. NEBILOX [Concomitant]
     Dosage: 2.5 MG
     Route: 048
  7. L72 [Concomitant]
     Dosage: 60DROPS
     Route: 048
     Dates: start: 20080101

REACTIONS (3)
  - RESTLESS LEGS SYNDROME [None]
  - RIB FRACTURE [None]
  - SOMNAMBULISM [None]
